FAERS Safety Report 20104279 (Version 1)
Quarter: 2021Q4

REPORT INFORMATION
  Report Type: Spontaneous
  Country: US (occurrence: US)
  Receive Date: 20211123
  Receipt Date: 20211123
  Transmission Date: 20220303
  Serious: Yes (Death)
  Sender: FDA-Public Use
  Company Number: US-LUNDBECK-DKLU3041344

PATIENT
  Age: 9 Year
  Sex: Female
  Weight: 19.2 kg

DRUGS (7)
  1. SABRIL [Suspect]
     Active Substance: VIGABATRIN
     Indication: Infantile spasms
     Route: 048
  2. SABRIL [Suspect]
     Active Substance: VIGABATRIN
     Indication: Lennox-Gastaut syndrome
  3. SABRIL [Suspect]
     Active Substance: VIGABATRIN
     Indication: Status epilepticus
  4. SABRIL [Suspect]
     Active Substance: VIGABATRIN
     Indication: Cerebral palsy
  5. SABRIL [Suspect]
     Active Substance: VIGABATRIN
     Indication: Partial seizures
  6. SABRIL [Suspect]
     Active Substance: VIGABATRIN
     Indication: Simple partial seizures
  7. SABRIL [Suspect]
     Active Substance: VIGABATRIN
     Indication: Epilepsy

REACTIONS (1)
  - Death [Fatal]
